FAERS Safety Report 4373979-4 (Version None)
Quarter: 2004Q2

REPORT INFORMATION
  Report Type: 
  Country: None (occurrence: None)
  Receive Date: 20040601
  Receipt Date: 20040205
  Transmission Date: 20050107
  Serious: No
  Sender: FDA-Public Use
  Company Number: MPS1-10160

PATIENT
  Age: 30 Month
  Sex: Female
  Weight: 12 kg

DRUGS (5)
  1. ALDURAZYME [Suspect]
     Indication: MUCOPOLYSACCHARIDOSIS IH/S
     Dosage: 0.48 MG/KG Q2WKS IV
     Route: 042
     Dates: start: 20040122
  2. ALDURAZYME [Suspect]
     Indication: MUCOPOLYSACCHARIDOSIS IH/S
     Dosage: 0.58 MG/KG Q2WKS IV
     Route: 042
     Dates: start: 20031026, end: 20040102
  3. XOPENEX [Concomitant]
  4. DIPHENHYDRAMINE HCL [Concomitant]
  5. ACETAMINOPHEN [Concomitant]

REACTIONS (2)
  - BODY TEMPERATURE INCREASED [None]
  - VOMITING [None]
